FAERS Safety Report 22077033 (Version 4)
Quarter: 2023Q2

REPORT INFORMATION
  Report Type: Spontaneous
  Country: US (occurrence: US)
  Receive Date: 20230309
  Receipt Date: 20230415
  Transmission Date: 20230721
  Serious: No
  Sender: FDA-Public Use
  Company Number: US-002147023-NVSC2023US053789

PATIENT
  Age: 44 Year
  Sex: Female

DRUGS (2)
  1. PROMACTA [Suspect]
     Active Substance: ELTROMBOPAG OLAMINE
     Indication: Pancytopenia
     Dosage: 150 MG, QD
     Route: 048
     Dates: start: 202302
  2. PROMACTA [Suspect]
     Active Substance: ELTROMBOPAG OLAMINE
     Dosage: UNK
     Route: 065

REACTIONS (4)
  - Abdominal discomfort [Unknown]
  - Abdominal pain [Unknown]
  - Nausea [Unknown]
  - Jaundice [Unknown]

NARRATIVE: CASE EVENT DATE: 20230301
